FAERS Safety Report 12760263 (Version 1)
Quarter: 2016Q3

REPORT INFORMATION
  Report Type: Spontaneous
  Country: DE (occurrence: DE)
  Receive Date: 20160919
  Receipt Date: 20160919
  Transmission Date: 20161109
  Serious: Yes (Hospitalization)
  Sender: FDA-Public Use
  Company Number: DE-JNJFOC-20160919062

PATIENT
  Sex: Female

DRUGS (2)
  1. RANEXA [Concomitant]
     Active Substance: RANOLAZINE
     Route: 065
  2. XARELTO [Suspect]
     Active Substance: RIVAROXABAN
     Indication: PRODUCT USED FOR UNKNOWN INDICATION
     Route: 048
     Dates: start: 201601

REACTIONS (2)
  - Liver function test abnormal [Unknown]
  - Creatinine renal clearance decreased [Unknown]
